FAERS Safety Report 7506682-X (Version None)
Quarter: 2011Q2

REPORT INFORMATION
  Report Type: 
  Country: None (occurrence: None)
  Receive Date: 20110526
  Receipt Date: 20110516
  Transmission Date: 20111010
  Serious: Yes (Other)
  Sender: FDA-Public Use
  Company Number: US-JNJFOC-20100808385

PATIENT
  Sex: Female
  Weight: 64.41 kg

DRUGS (4)
  1. ELMIRON [Suspect]
     Route: 048
     Dates: end: 20100601
  2. ELMIRON [Suspect]
     Route: 048
     Dates: start: 20100216
  3. ELMIRON [Suspect]
     Indication: CYSTITIS INTERSTITIAL
     Route: 048
     Dates: start: 20100216
  4. ELMIRON [Suspect]
     Indication: BLADDER PAIN
     Route: 048
     Dates: end: 20100601

REACTIONS (11)
  - ANXIETY [None]
  - FALL [None]
  - VAGINAL INFECTION [None]
  - DEPRESSION [None]
  - DIZZINESS [None]
  - JOINT STIFFNESS [None]
  - INCORRECT DOSE ADMINISTERED [None]
  - ANKLE FRACTURE [None]
  - GASTROOESOPHAGEAL REFLUX DISEASE [None]
  - JOINT SPRAIN [None]
  - ALOPECIA [None]
